FAERS Safety Report 18479818 (Version 1)
Quarter: 2020Q4

REPORT INFORMATION
  Report Type: Spontaneous
  Country: US (occurrence: US)
  Receive Date: 20201109
  Receipt Date: 20201109
  Transmission Date: 20210114
  Serious: Yes (Hospitalization)
  Sender: FDA-Public Use
  Company Number: None

PATIENT
  Age: 52 Year
  Sex: Female

DRUGS (18)
  1. DILTIAZEM ER, [Concomitant]
  2. METRONIDAZOL, [Concomitant]
  3. PANTOPRAZOLE, [Concomitant]
  4. CLARITHROMYC, [Concomitant]
  5. ONDANSETRON, [Concomitant]
  6. TETRACYCLINE [Concomitant]
     Active Substance: TETRACYCLINE
  7. FOLIC ACID, [Concomitant]
  8. OXYCODONE, [Concomitant]
  9. LOSARTAN POT, [Concomitant]
  10. PREDNISONE, [Concomitant]
  11. HUMIRA [Suspect]
     Active Substance: ADALIMUMAB
     Indication: RHEUMATOID ARTHRITIS
     Dosage: ?          OTHER DOSE:1 PEN;?
     Route: 058
     Dates: start: 20190829
  12. CARBAMAZEPIN, [Concomitant]
  13. DOXEPIN HCL, [Concomitant]
  14. LEVETIRACETA, [Concomitant]
  15. NYSTATIN CRE, [Concomitant]
  16. SUCRALFATE, [Concomitant]
  17. AMOXICILLIN, [Concomitant]
  18. MELOXICAM, [Concomitant]

REACTIONS (3)
  - Hepatic enzyme increased [None]
  - Helicobacter infection [None]
  - Joint swelling [None]

NARRATIVE: CASE EVENT DATE: 20201028
